FAERS Safety Report 6654354-6 (Version None)
Quarter: 2010Q1

REPORT INFORMATION
  Report Type: 
  Country: None (occurrence: None)
  Receive Date: 20100326
  Receipt Date: 20100318
  Transmission Date: 20100710
  Serious: Yes (Other)
  Sender: FDA-Public Use
  Company Number: IE-PFIZER INC-2010034925

PATIENT
  Sex: Male

DRUGS (4)
  1. LIPITOR [Suspect]
     Dosage: 80 MG, UNK
  2. LIPITOR [Suspect]
     Dosage: 10 MG, UNK
  3. NU-SEALS [Concomitant]
     Dosage: 75 MG, UNK
  4. BISOPROLOL FUMARATE [Concomitant]
     Dosage: 1.25 MG, UNK

REACTIONS (8)
  - ABDOMINAL PAIN UPPER [None]
  - ARTHRALGIA [None]
  - BACK PAIN [None]
  - CHEST DISCOMFORT [None]
  - LETHARGY [None]
  - LOW DENSITY LIPOPROTEIN INCREASED [None]
  - MALAISE [None]
  - MYALGIA [None]
